FAERS Safety Report 16649472 (Version 8)
Quarter: 2020Q3

REPORT INFORMATION
  Report Type: Spontaneous
  Country: AT (occurrence: AT)
  Receive Date: 20190730
  Receipt Date: 20200109
  Transmission Date: 20201105
  Serious: Yes (Death, Life-Threatening, Hospitalization, Other)
  Sender: FDA-Public Use
  Company Number: AT-ELI_LILLY_AND_COMPANY-AT201907012246

PATIENT
  Age: 31 Year
  Sex: Male

DRUGS (21)
  1. STROMBA [Suspect]
     Active Substance: STANOZOLOL
     Indication: INTENTIONAL PRODUCT MISUSE
     Dosage: 2 DOSAGE FORM, UNKNOWN
     Route: 065
  2. WINSTROL [Suspect]
     Active Substance: STANOZOLOL
     Indication: INTENTIONAL PRODUCT MISUSE
     Dosage: 2 DOSAGE FORM, UNKNOWN
     Route: 065
  3. CAPTAGON [Suspect]
     Active Substance: FENETHYLLINE HYDROCHLORIDE
     Indication: INTENTIONAL PRODUCT MISUSE
     Dosage: UNK UNK, UNKNOWN
     Route: 065
  4. CLENBUTEROL [Suspect]
     Active Substance: CLENBUTEROL
     Indication: INTENTIONAL PRODUCT MISUSE
     Dosage: UNK UNK, UNKNOWN
     Route: 065
  5. HALOTESTIN [Suspect]
     Active Substance: FLUOXYMESTERONE
     Dosage: 40 DOSAGE FORM, DAILY
     Route: 065
  6. AN 1 [Concomitant]
     Indication: PRODUCT USED FOR UNKNOWN INDICATION
     Dosage: UNK UNK, UNKNOWN
     Route: 065
  7. SOMATROPIN. [Suspect]
     Active Substance: SOMATROPIN
     Dosage: 24 INTERNATIONAL UNIT, DAILY
     Route: 065
  8. HALOTESTIN [Suspect]
     Active Substance: FLUOXYMESTERONE
     Indication: INTENTIONAL PRODUCT MISUSE
     Dosage: 30 DOSAGE FORM, DAILY
     Route: 065
  9. PARABOLAN [Suspect]
     Active Substance: TRENBOLONE
     Indication: INTENTIONAL PRODUCT MISUSE
     Dosage: 2 DOSAGE FORM, UNKNOWN
     Route: 065
  10. TESTOVIRON [TESTOSTERONE PROPIONATE] [Suspect]
     Active Substance: TESTOSTERONE PROPIONATE
     Indication: INTENTIONAL PRODUCT MISUSE
     Dosage: 250 MG, UNKNOWN
     Route: 065
  11. ASPIRIN BAYER [Suspect]
     Active Substance: ASPIRIN
     Indication: INTENTIONAL PRODUCT MISUSE
     Dosage: UNK UNK, UNKNOWN
     Route: 065
  12. STROMBA [Suspect]
     Active Substance: STANOZOLOL
     Indication: INTENTIONAL PRODUCT MISUSE
     Dosage: 50 DOSAGE FORM, DAILY
     Route: 065
  13. ALDACTONE [Suspect]
     Active Substance: SPIRONOLACTONE
     Indication: INTENTIONAL PRODUCT MISUSE
     Dosage: UNK UNK, UNKNOWN
     Route: 065
  14. VALIUM [Suspect]
     Active Substance: DIAZEPAM
     Indication: INTENTIONAL PRODUCT MISUSE
     Dosage: UNK UNK, UNKNOWN
     Route: 065
  15. SOMATROPIN. [Suspect]
     Active Substance: SOMATROPIN
     Indication: INTENTIONAL PRODUCT MISUSE
     Dosage: 16 INTERNATIONAL UNIT, UNKNOWN
     Route: 065
  16. STROMBA [Suspect]
     Active Substance: STANOZOLOL
     Dosage: 80 DOSAGE FORM, DAILY
     Route: 065
  17. INSULIN [Suspect]
     Active Substance: INSULIN NOS
     Indication: INTENTIONAL PRODUCT MISUSE
     Dosage: 20 INTERNATIONAL UNIT, UNKNOWN
     Route: 065
  18. METHANDROSTENOLON [Suspect]
     Active Substance: METHANDROSTENOLONE
     Indication: INTENTIONAL PRODUCT MISUSE
     Dosage: UNK, UNKNOWN
     Route: 065
  19. LASIX [Suspect]
     Active Substance: FUROSEMIDE
     Indication: INTENTIONAL PRODUCT MISUSE
     Dosage: UNK UNK, UNKNOWN
     Route: 065
  20. EPHEDRINE. [Suspect]
     Active Substance: EPHEDRINE
     Indication: INTENTIONAL PRODUCT MISUSE
     Dosage: UNK UNK, UNKNOWN
     Route: 065
  21. MASTERON [Suspect]
     Active Substance: DROMOSTANOLONE PROPIONATE
     Indication: INTENTIONAL PRODUCT MISUSE
     Dosage: 2 DOSAGE FORM, DAILY
     Route: 065

REACTIONS (5)
  - Intra-abdominal haemorrhage [Fatal]
  - Multiple organ dysfunction syndrome [Fatal]
  - Poisoning [Fatal]
  - Hepatic neoplasm [Fatal]
  - Intentional product misuse [Unknown]
